FAERS Safety Report 10119147 (Version 4)
Quarter: 2016Q4

REPORT INFORMATION
  Report Type: Report from Study
  Country: TH (occurrence: TH)
  Receive Date: 20140425
  Receipt Date: 20161026
  Transmission Date: 20170206
  Serious: Yes (Hospitalization, Other)
  Sender: FDA-Public Use
  Company Number: TH-TEVA-477890USA

PATIENT
  Age: 42 Year
  Sex: Male

DRUGS (19)
  1. BENDAMUSTINE [Suspect]
     Active Substance: BENDAMUSTINE
     Route: 042
     Dates: start: 20140328
  2. SODIUM BICARBONATE. [Concomitant]
     Active Substance: SODIUM BICARBONATE
     Indication: PROPHYLAXIS
     Dosage: 3 DOSAGE FORMS DAILY;
     Route: 048
     Dates: start: 20140325
  3. LAMIVUDINE. [Concomitant]
     Active Substance: LAMIVUDINE
     Indication: CHRONIC HEPATITIS
     Dosage: 450 MILLIGRAM DAILY;
     Route: 048
     Dates: start: 20140302
  4. SIMVASTATIN. [Concomitant]
     Active Substance: SIMVASTATIN
     Route: 048
  5. PARACETAMOL [Concomitant]
     Active Substance: ACETAMINOPHEN
     Dosage: CONTINUOUS
     Route: 048
     Dates: start: 20140327
  6. DIPHENHYDRAMINE HYDROCHLORIDE. [Concomitant]
     Active Substance: DIPHENHYDRAMINE HYDROCHLORIDE
     Indication: PROPHYLAXIS
     Dosage: CONTINUOUS
     Route: 048
     Dates: start: 20140327
  7. GLUCOSE [Concomitant]
     Active Substance: DEXTROSE
     Indication: PROPHYLAXIS
     Dosage: 5%
     Route: 042
     Dates: start: 20140325, end: 20140329
  8. BENDAMUSTINE [Suspect]
     Active Substance: BENDAMUSTINE
     Indication: CHRONIC LYMPHOCYTIC LEUKAEMIA
     Route: 042
     Dates: start: 20140327
  9. ALLOPURINOL. [Concomitant]
     Active Substance: ALLOPURINOL
     Indication: PROPHYLAXIS
     Dosage: 200 MILLIGRAM DAILY;
     Route: 048
     Dates: end: 20140326
  10. OBINUTUZUMAB [Suspect]
     Active Substance: OBINUTUZUMAB
     Dosage: 100 MG 0N DAY 1/2 (SPLIT DOSE), 8 AND 15 OF CYCLE 1 AND ON DAY 1 OF CYCLE 2-6
     Route: 042
     Dates: start: 20140417
  11. OBINUTUZUMAB [Suspect]
     Active Substance: OBINUTUZUMAB
     Indication: CHRONIC LYMPHOCYTIC LEUKAEMIA
     Dosage: 1/2 SPLIT DOSE 8 AND 15 OF CYCLE 1 AND DAY 1 OF CYCLE 2-6
     Route: 042
     Dates: start: 20140327
  12. CHLORPHENAMINE [Concomitant]
     Active Substance: CHLORPHENIRAMINE MALEATE
     Route: 042
     Dates: start: 20140330, end: 20140331
  13. OBINUTUZUMAB [Suspect]
     Active Substance: OBINUTUZUMAB
     Dosage: 1/2 SPLIT DOSE 8 AND 15 OF CYCLE 1 AND DAY 1 OF CYCLI 2-6
     Route: 042
     Dates: start: 20140328
  14. SIMVASTATIN. [Concomitant]
     Active Substance: SIMVASTATIN
     Indication: DYSLIPIDAEMIA
     Dosage: 20 MILLIGRAM DAILY;
     Route: 048
     Dates: start: 20140329
  15. DEXAMETHASON [Concomitant]
     Active Substance: DEXAMETHASONE
     Dosage: 5 MILLIGRAM DAILY;
     Route: 042
     Dates: start: 20140327
  16. DEXAMETHASON [Concomitant]
     Active Substance: DEXAMETHASONE
     Dosage: CONTINUOUS
     Route: 042
     Dates: start: 20140327
  17. OBINUTUZUMAB [Suspect]
     Active Substance: OBINUTUZUMAB
     Dosage: 100 MG 0N DAY 1/2 (SPLIT DOSE), 8 AND 15 OF CYCLE 1 AND ON DAY 1 OF CYCLE 2-6
     Route: 042
     Dates: start: 20140501
  18. CHLORPHENAMINE [Concomitant]
     Active Substance: CHLORPHENIRAMINE MALEATE
     Indication: PROPHYLAXIS
     Route: 042
     Dates: start: 20140327, end: 20140328
  19. PARACETAMOL [Concomitant]
     Active Substance: ACETAMINOPHEN
     Dosage: SINGLE DOSE
     Route: 048
     Dates: start: 20140327

REACTIONS (2)
  - Febrile neutropenia [Recovered/Resolved]
  - Ischaemic stroke [Recovered/Resolved with Sequelae]

NARRATIVE: CASE EVENT DATE: 20140329
